FAERS Safety Report 5736909-6 (Version None)
Quarter: 2008Q2

REPORT INFORMATION
  Report Type: 
  Country: None (occurrence: None)
  Receive Date: 20080509
  Receipt Date: 20080429
  Transmission Date: 20081010
  Serious: Yes (Other)
  Sender: FDA-Public Use
  Company Number: CHNY2008IE01827

PATIENT
  Age: 74 Year
  Sex: Male

DRUGS (1)
  1. SCOPODERM TTS(NCH)(HYOSCINE HYDROBROMIDE) TRANS-THERAPEUTIC-SYSTEM [Suspect]
     Dosage: 1 DF, Q72H, TRANSDERMAL; 2 DF, Q72H, TRANDERMAL
     Route: 062

REACTIONS (2)
  - DISEASE PROGRESSION [None]
  - OVERDOSE [None]
